FAERS Safety Report 7624552-3 (Version None)
Quarter: 2011Q3

REPORT INFORMATION
  Report Type: 
  Country: None (occurrence: None)
  Receive Date: 20110712
  Receipt Date: 20110705
  Transmission Date: 20111222
  Serious: Yes (Life-Threatening, Hospitalization)
  Sender: FDA-Public Use
  Company Number: 2010SP061885

PATIENT
  Age: 67 Year
  Sex: Female

DRUGS (12)
  1. TEMOZOLOMIDE [Suspect]
     Indication: OVARIAN CANCER
     Dosage: 150 MG/M2; PO
     Route: 048
     Dates: start: 20101012, end: 20101016
  2. HYDROCHLORIDE [Concomitant]
  3. CANDESARTAN CILEXETIL [Concomitant]
  4. TAXOL [Concomitant]
  5. DOCUSATE [Concomitant]
  6. DOXORUBICIN HCL [Suspect]
     Indication: OVARIAN CANCER
     Dosage: 90 MG;IV; 72 MG;IV
     Route: 042
     Dates: start: 20100803, end: 20100803
  7. DOXORUBICIN HCL [Suspect]
     Indication: OVARIAN CANCER
     Dosage: 90 MG;IV; 72 MG;IV
     Route: 042
     Dates: start: 20100831, end: 20100831
  8. ABT-888 [Suspect]
     Indication: OVARIAN CANCER
     Dosage: 40 MG; PO
     Route: 048
     Dates: start: 20101012, end: 20101018
  9. PYRIDOXINE HCL [Concomitant]
  10. LEVOTHYROXINE SODIUM [Concomitant]
  11. CARBOPLATIN [Concomitant]
  12. BACTRIM [Concomitant]

REACTIONS (8)
  - RECTAL HAEMORRHAGE [None]
  - BONE MARROW FAILURE [None]
  - BACTERAEMIA [None]
  - ENTEROCOCCAL INFECTION [None]
  - BLOOD CULTURE POSITIVE [None]
  - HYPOTENSION [None]
  - FEBRILE NEUTROPENIA [None]
  - URINARY TRACT INFECTION [None]
